FAERS Safety Report 7666615-2 (Version None)
Quarter: 2011Q3

REPORT INFORMATION
  Report Type: 
  Country: None (occurrence: None)
  Receive Date: 20110806
  Receipt Date: 20110330
  Transmission Date: 20111222
  Serious: No
  Sender: FDA-Public Use
  Company Number: US-ABBOTT-11P-163-0715031-00

PATIENT
  Sex: Male
  Weight: 74.91 kg

DRUGS (3)
  1. ASPIRIN [Concomitant]
     Indication: PRODUCT USED FOR UNKNOWN INDICATION
     Dosage: 30 MINUTES PRIOR TO NIASPAN COATED
  2. NIASPAN [Suspect]
     Indication: BLOOD TRIGLYCERIDES DECREASED
     Dosage: AT BEDTIME
     Dates: start: 20110322
  3. NIASPAN [Suspect]
     Indication: LOW DENSITY LIPOPROTEIN DECREASED

REACTIONS (3)
  - FLUSHING [None]
  - PARAESTHESIA [None]
  - FEELING HOT [None]
